FAERS Safety Report 14099983 (Version 1)
Quarter: 2017Q4

REPORT INFORMATION
  Report Type: Spontaneous
  Country: FR (occurrence: FR)
  Receive Date: 20171017
  Receipt Date: 20171017
  Transmission Date: 20180321
  Serious: Yes (Hospitalization)
  Sender: FDA-Public Use
  Company Number: FR-SA-2017SA199557

PATIENT
  Age: 90 Year
  Sex: Female

DRUGS (9)
  1. LERCAN [Concomitant]
     Active Substance: LERCANIDIPINE
     Route: 065
     Dates: end: 20170919
  2. OXYNORM [Concomitant]
     Active Substance: OXYCODONE HYDROCHLORIDE
  3. LOVENOX [Suspect]
     Active Substance: ENOXAPARIN SODIUM
     Indication: ANTICOAGULANT THERAPY
     Route: 058
     Dates: start: 20170915, end: 20170925
  4. CORDARONE [Concomitant]
     Active Substance: AMIODARONE HYDROCHLORIDE
     Route: 065
     Dates: end: 20170922
  5. COLCHICINE OPOCALCIUM [Suspect]
     Active Substance: COLCHICINE
     Route: 048
     Dates: start: 20170916, end: 20170925
  6. RAMIPRIL. [Concomitant]
     Active Substance: RAMIPRIL
     Route: 065
     Dates: end: 20170919
  7. PARACETAMOL [Concomitant]
     Active Substance: ACETAMINOPHEN
  8. LACTULOSE. [Concomitant]
     Active Substance: LACTULOSE
  9. KARDEGIC [Concomitant]
     Active Substance: ASPIRIN DL-LYSINE
     Route: 065
     Dates: end: 20170921

REACTIONS (2)
  - Cholestasis [Not Recovered/Not Resolved]
  - Hepatocellular injury [Recovered/Resolved]

NARRATIVE: CASE EVENT DATE: 201709
